FAERS Safety Report 5241221-8 (Version None)
Quarter: 2007Q1

REPORT INFORMATION
  Report Type: 
  Country: None (occurrence: None)
  Receive Date: 20070220
  Receipt Date: 20070212
  Transmission Date: 20070707
  Serious: Yes (Disabling)
  Sender: FDA-Public Use
  Company Number: NL-BRISTOL-MYERS SQUIBB COMPANY-13679600

PATIENT
  Age: 55 Year
  Sex: Female
  Weight: 74 kg

DRUGS (7)
  1. FOSINOPRIL SODIUM [Suspect]
     Dates: start: 20030201
  2. CORDARONE [Suspect]
     Dosage: REDUCED TO 200 MG/DAY DUE TO EVENTS.
     Dates: start: 20030601, end: 20061201
  3. METOPROLOL TARTRATE [Suspect]
     Dates: start: 20030201
  4. SPIRONOLACTONE [Suspect]
     Dates: start: 20041201
  5. BUMETANIDE [Suspect]
     Dates: start: 20030201
  6. ACENOCOUMAROL [Concomitant]
     Dates: start: 20030201
  7. ROSUVASTATIN CALCIUM [Concomitant]
     Dates: start: 20040101

REACTIONS (6)
  - DRY MOUTH [None]
  - HEADACHE [None]
  - MEMORY IMPAIRMENT [None]
  - PHOTOPHOBIA [None]
  - PHOTOSENSITIVITY REACTION [None]
  - SKIN DISCOLOURATION [None]
